FAERS Safety Report 5772870-6 (Version None)
Quarter: 2008Q2

REPORT INFORMATION
  Report Type: 
  Country: None (occurrence: None)
  Receive Date: 20080613
  Receipt Date: 20080603
  Transmission Date: 20081010
  Serious: Yes (Disabling)
  Sender: FDA-Public Use
  Company Number: GB-PFIZER INC-2008040524

PATIENT
  Sex: Female

DRUGS (3)
  1. LYRICA [Suspect]
     Indication: NEURALGIA
     Route: 048
  2. AMITRIPTYLINE HCL [Concomitant]
     Route: 048
  3. LABETALOL HCL [Concomitant]
     Route: 048

REACTIONS (6)
  - ABNORMAL DREAMS [None]
  - FATIGUE [None]
  - FLUSHING [None]
  - HEADACHE [None]
  - SOMNOLENCE [None]
  - TOOTHACHE [None]
